FAERS Safety Report 4974539-4 (Version None)
Quarter: 2006Q1

REPORT INFORMATION
  Report Type: 
  Country: None (occurrence: None)
  Receive Date: 20060216
  Receipt Date: 20051101
  Transmission Date: 20060701
  Serious: No
  Sender: FDA-Public Use
  Company Number: TPA2005A01378

PATIENT
  Age: 65 Year
  Sex: Male
  Weight: 72.5755 kg

DRUGS (9)
  1. ROZEREM [Suspect]
     Indication: INSOMNIA
     Dosage: 8 MG, HS, PER ORAL
     Route: 048
     Dates: start: 20051027
  2. CRESTOR [Concomitant]
  3. ZETIA [Concomitant]
  4. ASPIRIN [Concomitant]
  5. PROTONIX [Concomitant]
  6. ISOSORBIDE (ISOSORBIDE) [Concomitant]
  7. PROPRANOLOL [Concomitant]
  8. GABITRIL [Concomitant]
  9. FLONASE [Concomitant]

REACTIONS (5)
  - ABDOMINAL PAIN UPPER [None]
  - INITIAL INSOMNIA [None]
  - MUSCLE SPASMS [None]
  - MUSCLE TWITCHING [None]
  - NASAL CONGESTION [None]
